FAERS Safety Report 10173805 (Version 3)
Quarter: 2014Q2

REPORT INFORMATION
  Report Type: Spontaneous
  Country: JP (occurrence: JP)
  Receive Date: 20140515
  Receipt Date: 20140616
  Transmission Date: 20141212
  Serious: Yes (Death, Hospitalization, Other)
  Sender: FDA-Public Use
  Company Number: JP-PFIZER INC-2014131167

PATIENT
  Age: 74 Year
  Sex: Female

DRUGS (5)
  1. AZULFIDINE EN [Suspect]
     Dosage: 1000 MG, DAILY
     Route: 048
  2. AZULFIDINE EN [Suspect]
     Dosage: 500 MG, DAILY
     Route: 048
     Dates: end: 20140318
  3. PROGRAF [Suspect]
     Dosage: 3 MG, DAILY
     Route: 048
  4. PROGRAF [Suspect]
     Dosage: UNK MG, DAILY
     Route: 048
     Dates: end: 20140517
  5. PREDONINE [Concomitant]
     Dosage: 5 MG, DAILY
     Route: 048

REACTIONS (2)
  - Pulmonary cavitation [Fatal]
  - Pneumonia [Unknown]
